FAERS Safety Report 5578167-1 (Version None)
Quarter: 2007Q4

REPORT INFORMATION
  Report Type: 
  Country: None (occurrence: None)
  Receive Date: 20071231
  Receipt Date: 20071219
  Transmission Date: 20080405
  Serious: Yes (Disabling)
  Sender: FDA-Public Use
  Company Number: GB-PFIZER INC-2007107429

PATIENT
  Age: 71 Year
  Sex: Female

DRUGS (9)
  1. PREGABALIN [Suspect]
     Indication: OSTEOARTHRITIS
     Route: 048
     Dates: start: 20071101, end: 20071109
  2. ACETYLSALICYLIC ACID SRT [Concomitant]
  3. ATENOLOL [Concomitant]
  4. BENDROFLUMETHIAZIDE [Concomitant]
  5. CO-DYDRAMOL [Concomitant]
  6. DICLOFENAC SODIUM [Concomitant]
  7. NITRAZEPAM [Concomitant]
  8. OMEPRAZOLE [Concomitant]
  9. SIMVASTATIN [Concomitant]

REACTIONS (1)
  - MOTOR DYSFUNCTION [None]
